FAERS Safety Report 12090902 (Version 1)
Quarter: 2016Q1

REPORT INFORMATION
  Report Type: Spontaneous
  Country: US (occurrence: US)
  Receive Date: 20160218
  Receipt Date: 20160218
  Transmission Date: 20160526
  Serious: Yes (Hospitalization)
  Sender: FDA-Public Use
  Company Number: US-HORIZON-ACT-0036-2016

PATIENT
  Age: 65 Year
  Sex: Female

DRUGS (1)
  1. ACTIMMUNE [Suspect]
     Active Substance: INTERFERON GAMMA-1B
     Indication: MYCOBACTERIAL INFECTION
     Dosage: 77 ?G TIW
     Dates: start: 20130123

REACTIONS (4)
  - Therapy cessation [Unknown]
  - Sinusitis [Unknown]
  - Off label use [Unknown]
  - Lung infection [Unknown]
